FAERS Safety Report 8197613-0 (Version None)
Quarter: 2012Q1

REPORT INFORMATION
  Report Type: 
  Country: None (occurrence: None)
  Receive Date: 20120309
  Receipt Date: 20120301
  Transmission Date: 20120608
  Serious: Yes (Hospitalization)
  Sender: FDA-Public Use
  Company Number: US-ALEXION-A201200363

PATIENT
  Sex: Male

DRUGS (12)
  1. SOLIRIS [Suspect]
     Indication: PAROXYSMAL NOCTURNAL HAEMOGLOBINURIA
     Dosage: 600 MG, QW
     Route: 042
  2. AMBIEN [Concomitant]
     Dosage: 10 MG, QD X 10 DAYS
     Route: 048
  3. BUDESONIDE [Concomitant]
     Dosage: 6 MG, QD, ON TAPER
     Route: 048
  4. FOLIC ACID [Concomitant]
     Dosage: 1 MG, QD
     Route: 048
  5. OMEPRAZOLE [Concomitant]
     Dosage: 20 MG, QD
     Route: 048
  6. METOPROLOL TARTRATE [Concomitant]
     Dosage: 50 MG, QD X 30 DAYS
     Route: 048
  7. LORAZEPAM [Concomitant]
     Dosage: 0.5 MG, Q 4-6 HOURS PRN
     Route: 048
  8. MULTI-VITAMINS [Concomitant]
     Dosage: 1 TAB, QD
     Route: 048
  9. FLECAINIDE ACETATE [Concomitant]
     Indication: ATRIAL FIBRILLATION
     Dosage: 100 MG, PRN X 30 DAYS
  10. LEVAQUIN [Concomitant]
     Dosage: 500, MG, QD X 10DAYS
     Route: 048
  11. VITAMIN B6 [Concomitant]
     Dosage: UNK, QD
     Route: 048
  12. SOLIRIS [Suspect]
     Dosage: 900 MG, Q2W
     Dates: start: 20120125

REACTIONS (1)
  - BONE MARROW TRANSPLANT [None]
